FAERS Safety Report 6659840-0 (Version None)
Quarter: 2010Q1

REPORT INFORMATION
  Report Type: 
  Country: None (occurrence: None)
  Receive Date: 20100330
  Receipt Date: 20100330
  Transmission Date: 20100710
  Serious: Yes (Hospitalization)
  Sender: FDA-Public Use
  Company Number: None

PATIENT
  Sex: Female
  Weight: 94.8 kg

DRUGS (3)
  1. FLUOROURACIL [Suspect]
     Dosage: 1060 MG
     Dates: end: 20100308
  2. CYCLOPHOSPHAMIDE [Suspect]
     Dosage: 1060 MG
     Dates: end: 20100308
  3. ELLENCE [Suspect]
     Dosage: 159 MG
     Dates: end: 20100308

REACTIONS (1)
  - ADVERSE EVENT [None]
